FAERS Safety Report 23690771 (Version 1)
Quarter: 2024Q2

REPORT INFORMATION
  Report Type: Spontaneous
  Country: US (occurrence: US)
  Receive Date: 20240401
  Receipt Date: 20240401
  Transmission Date: 20240715
  Serious: No
  Sender: FDA-Public Use
  Company Number: US-APOTEX-2024AP000795

PATIENT
  Sex: Female

DRUGS (1)
  1. BRIMONIDINE TARTRATE [Suspect]
     Active Substance: BRIMONIDINE TARTRATE
     Indication: Product used for unknown indication
     Dosage: 1 GTT DROPS, BID
     Route: 047
     Dates: start: 202312

REACTIONS (4)
  - Product dose omission issue [Unknown]
  - Product use complaint [Unknown]
  - Product container issue [Unknown]
  - Product substitution issue [Unknown]
